FAERS Safety Report 6758389-4 (Version None)
Quarter: 2010Q2

REPORT INFORMATION
  Report Type: 
  Country: None (occurrence: None)
  Receive Date: 20100607
  Receipt Date: 20100531
  Transmission Date: 20101027
  Serious: No
  Sender: FDA-Public Use
  Company Number: AU-JNJFOC-20100600099

PATIENT
  Sex: Female

DRUGS (1)
  1. DURAGESIC-100 [Suspect]
     Indication: DRUG USE FOR UNKNOWN INDICATION
     Route: 062

REACTIONS (2)
  - DECREASED APPETITE [None]
  - WRONG TECHNIQUE IN DRUG USAGE PROCESS [None]
